FAERS Safety Report 16700088 (Version 2)
Quarter: 2019Q3

REPORT INFORMATION
  Report Type: Spontaneous
  Country: TW (occurrence: TW)
  Receive Date: 20190813
  Receipt Date: 20190910
  Transmission Date: 20191004
  Serious: Yes (Hospitalization, Other)
  Sender: FDA-Public Use
  Company Number: TW-AMGEN-TWNSP2019113348

PATIENT
  Age: 63 Year
  Sex: Female

DRUGS (5)
  1. ARHEUMA [Concomitant]
     Dosage: 20 MILLIGRAM, QD
  2. ENBREL [Suspect]
     Active Substance: ETANERCEPT
     Indication: RHEUMATOID ARTHRITIS
     Dosage: 25 MG, BIW
     Route: 058
     Dates: start: 20140116, end: 20190102
  3. MTX [METHOTREXATE] [Concomitant]
     Active Substance: METHOTREXATE SODIUM
     Dosage: 7.5 MILLIGRAM, QWK
  4. IMURAN [Concomitant]
     Active Substance: AZATHIOPRINE
     Dosage: 50 MG, DAILY
  5. ENBREL [Suspect]
     Active Substance: ETANERCEPT
     Dosage: 25 MG, Q5D
     Route: 058
     Dates: start: 20190103, end: 20190704

REACTIONS (5)
  - Product use issue [Unknown]
  - Off label use [Unknown]
  - Cough [Not Recovered/Not Resolved]
  - Lung adenocarcinoma stage I [Not Recovered/Not Resolved]
  - Wheezing [Not Recovered/Not Resolved]
